FAERS Safety Report 5053606-3 (Version None)
Quarter: 2006Q3

REPORT INFORMATION
  Report Type: 
  Country: None (occurrence: None)
  Receive Date: 20060718
  Receipt Date: 20060119
  Transmission Date: 20061208
  Serious: Yes (Other)
  Sender: FDA-Public Use
  Company Number: PHNU2006DE00601

PATIENT
  Sex: Male
  Weight: 72 kg

DRUGS (5)
  1. ZOLADEX [Suspect]
     Indication: PROSTATE CANCER
     Dosage: 10.8 MG, Q3MO
     Route: 065
     Dates: start: 20010101
  2. CASODEX [Suspect]
     Route: 048
  3. DOCETAXEL [Suspect]
     Indication: PROSTATE CANCER
     Dosage: 135 MG, SOME CYCLES
     Route: 042
     Dates: start: 20040501
  4. MULTOSIN [Suspect]
     Dosage: TEMPORARILY
     Route: 048
  5. ZOMETA [Suspect]
     Indication: METASTASES TO BONE
     Dosage: 4 MG, QMO
     Route: 042
     Dates: start: 20030605

REACTIONS (3)
  - DENTAL TREATMENT [None]
  - OSTEONECROSIS [None]
  - TOOTH EXTRACTION [None]
